FAERS Safety Report 21586810 (Version 1)
Quarter: 2022Q4

REPORT INFORMATION
  Report Type: Report from Study
  Country: IT (occurrence: IT)
  Receive Date: 20221113
  Receipt Date: 20221113
  Transmission Date: 20230113
  Serious: Yes (Hospitalization, Other)
  Sender: FDA-Public Use
  Company Number: IT-BRISTOL-MYERS SQUIBB COMPANY-2022-135515

PATIENT
  Age: 46 Year
  Sex: Female
  Weight: 42 kg

DRUGS (3)
  1. PACLITAXEL [Suspect]
     Active Substance: PACLITAXEL
     Indication: Adenocarcinoma pancreas
     Route: 042
     Dates: start: 20181019, end: 20181214
  2. Sodium pantoprazole [Concomitant]
     Route: 065
  3. Ursolyctic acid [Concomitant]
     Route: 065

REACTIONS (2)
  - Pancreatic duct obstruction [Unknown]
  - Subacute pancreatitis [Recovered/Resolved]

NARRATIVE: CASE EVENT DATE: 20190101
